FAERS Safety Report 8391924-1 (Version None)
Quarter: 2012Q2

REPORT INFORMATION
  Report Type: 
  Country: None (occurrence: None)
  Receive Date: 20120525
  Receipt Date: 20120525
  Transmission Date: 20120825
  Serious: Yes (Death, Disabling)
  Sender: FDA-Public Use
  Company Number: None

PATIENT
  Sex: Male
  Weight: 90.7194 kg

DRUGS (2)
  1. PRADAXA [Suspect]
  2. COUMADIN [Suspect]
     Dosage: 5 MG ONCE DAILY ORAL
     Route: 048

REACTIONS (1)
  - HAEMATOCHEZIA [None]
